FAERS Safety Report 7510804-4 (Version None)
Quarter: 2011Q2

REPORT INFORMATION
  Report Type: 
  Country: None (occurrence: None)
  Receive Date: 20110530
  Receipt Date: 20110526
  Transmission Date: 20111010
  Serious: Yes (Hospitalization)
  Sender: FDA-Public Use
  Company Number: US-AMGEN-USACT2011027197

PATIENT
  Age: 59 Year
  Sex: Female

DRUGS (5)
  1. BEVACIZUMAB [Concomitant]
     Indication: NEOPLASM MALIGNANT
     Dosage: UNK
     Route: 065
     Dates: start: 20110203
  2. DOXORUBICIN HCL [Concomitant]
     Indication: NEOPLASM MALIGNANT
     Dosage: UNK
     Dates: start: 20110203
  3. CYCLOPHOSPHAMIDE [Concomitant]
     Indication: NEOPLASM MALIGNANT
     Dosage: UNK
     Dates: start: 20110203
  4. FILGRASTIM [Suspect]
     Indication: NEOPLASM MALIGNANT
     Dosage: UNK
     Dates: start: 20110203
  5. PACLITAXEL [Concomitant]

REACTIONS (2)
  - ACUTE RESPIRATORY DISTRESS SYNDROME [None]
  - PNEUMONITIS [None]
